FAERS Safety Report 6071800-X (Version None)
Quarter: 2009Q1

REPORT INFORMATION
  Report Type: 
  Country: None (occurrence: None)
  Receive Date: 20090205
  Receipt Date: 20090120
  Transmission Date: 20090719
  Serious: Yes (Hospitalization)
  Sender: FDA-Public Use
  Company Number: 2009S1001287

PATIENT
  Age: 35 Year
  Sex: Male

DRUGS (3)
  1. PAROXETINE (PAROXETINE) [Suspect]
  2. ALPRAZOLAM [Suspect]
  3. LITHIUM (LITHIUM) [Suspect]

REACTIONS (14)
  - APATHY [None]
  - CONTUSION [None]
  - COUGH [None]
  - DECUBITUS ULCER [None]
  - DYSARTHRIA [None]
  - DYSPHAGIA [None]
  - DYSPNOEA [None]
  - MAJOR DEPRESSION [None]
  - NEUROLEPTIC MALIGNANT SYNDROME [None]
  - PNEUMONIA ASPIRATION [None]
  - POISONING DELIBERATE [None]
  - RENAL FAILURE [None]
  - RIB FRACTURE [None]
  - SUICIDE ATTEMPT [None]
